FAERS Safety Report 6683338-7 (Version None)
Quarter: 2010Q2

REPORT INFORMATION
  Report Type: 
  Country: None (occurrence: None)
  Receive Date: 20100415
  Receipt Date: 20100412
  Transmission Date: 20101027
  Serious: Yes (Life-Threatening, Hospitalization)
  Sender: FDA-Public Use
  Company Number: PHHY2010US23113

PATIENT
  Sex: Male

DRUGS (18)
  1. SANDOSTATIN LAR [Suspect]
  2. CARBOPLATIN [Suspect]
  3. ETOPOSIDE [Suspect]
  4. METOPROLOL TARTRATE [Concomitant]
     Dosage: 50 MG, UNK
  5. LISINOPRIL [Concomitant]
     Dosage: 5 MG, UNK
  6. MECLIZINE [Concomitant]
     Dosage: 25 MG, UNK
  7. PLAVIX [Concomitant]
     Dosage: 75 MG, UNK
  8. VYTORIN [Concomitant]
  9. OMEPRAZOLE [Concomitant]
  10. METFORMIN HCL [Concomitant]
  11. CHOLESTYRAMINE RESIN [Concomitant]
  12. ISOSORBIDE MONONITRATE [Concomitant]
  13. VITAMINS [Concomitant]
  14. COQ10 [Concomitant]
  15. FOLIC ACID [Concomitant]
  16. IRON [Concomitant]
  17. ZINC [Concomitant]
  18. FISH OIL [Concomitant]

REACTIONS (5)
  - COLON CANCER RECURRENT [None]
  - COLON OPERATION [None]
  - DRUG INEFFECTIVE [None]
  - HEPATIC NEOPLASM MALIGNANT [None]
  - MALAISE [None]
